FAERS Safety Report 9579384 (Version 1)
Quarter: 2013Q4

REPORT INFORMATION
  Report Type: Spontaneous
  Country: US (occurrence: US)
  Receive Date: 20131001
  Receipt Date: 20131001
  Transmission Date: 20140711
  Serious: No
  Sender: FDA-Public Use
  Company Number: US-AMGEN-USASP2013017716

PATIENT
  Age: 45 Year
  Sex: Female
  Weight: 97.51 kg

DRUGS (4)
  1. ENBREL [Suspect]
     Indication: RHEUMATOID ARTHRITIS
     Dosage: UNK
     Route: 058
  2. VITAMIN D                          /00107901/ [Concomitant]
     Dosage: UNK
  3. VENTOLIN HFA [Concomitant]
     Dosage: UNK
  4. ADVAIR [Concomitant]
     Dosage: UNK

REACTIONS (1)
  - Therapeutic response decreased [Unknown]
